FAERS Safety Report 8191182-7 (Version None)
Quarter: 2012Q1

REPORT INFORMATION
  Report Type: 
  Country: None (occurrence: None)
  Receive Date: 20120307
  Receipt Date: 20120302
  Transmission Date: 20120608
  Serious: No
  Sender: FDA-Public Use
  Company Number: US-PFIZER INC-2012053107

PATIENT
  Sex: Male

DRUGS (15)
  1. UROXATRAL [Concomitant]
     Dosage: 10 MG, TABLETS
  2. LIPITOR [Concomitant]
     Dosage: 40 MG, TABLET
  3. TYLENOL-500 [Concomitant]
  4. MIRAPEX [Interacting]
     Dosage: 1.5 MG, TABLET
  5. LOVAZA [Concomitant]
  6. ALENDRONATE SODIUM [Concomitant]
     Dosage: 70 MG, TABLET
  7. GLUCOSAMINE HYDROCHLORIDE [Concomitant]
     Dosage: 1500 MG, UNK
  8. BYSTOLIC [Concomitant]
     Dosage: 5 MG, TABLET
  9. ANDROGEL [Concomitant]
     Dosage: 5 G, GEL PUMP
  10. CHONDROITIN SULFATE [Concomitant]
     Indication: SUPPLEMENTATION THERAPY
     Dosage: 1200 MG, UNK
  11. VITAMIN D [Concomitant]
     Dosage: 1000 IU, UNK
  12. DARIFENACIN [Concomitant]
     Dosage: 15 MG, SR TABLETS
  13. CALCIUM MAGNESIUM ZINC [Concomitant]
  14. NAPROXEN (ALEVE) [Concomitant]
     Dosage: 220 MG, UNK
  15. VIAGRA [Suspect]
     Indication: ERECTILE DYSFUNCTION
     Dosage: 50 MG, TABLET

REACTIONS (2)
  - DRUG INTERACTION [None]
  - DRUG EFFECT DECREASED [None]
